FAERS Safety Report 10098206 (Version 1)
Quarter: 2014Q2

REPORT INFORMATION
  Report Type: Spontaneous
  Country: US (occurrence: US)
  Receive Date: 20140423
  Receipt Date: 20140423
  Transmission Date: 20141212
  Serious: No
  Sender: FDA-Public Use
  Company Number: US-BRISTOL-MYERS SQUIBB COMPANY-20079174

PATIENT
  Age: 42 Year
  Sex: Female
  Weight: 75.73 kg

DRUGS (8)
  1. YERVOY [Suspect]
     Indication: MALIGNANT MELANOMA STAGE IV
     Dates: start: 20131206
  2. HYDROXYCHLOROQUINE [Concomitant]
  3. WELLBUTRIN [Concomitant]
  4. XANAX [Concomitant]
  5. IBUPROFEN [Concomitant]
  6. BENADRYL [Concomitant]
  7. CLARITIN [Concomitant]
  8. VITAMINS [Concomitant]

REACTIONS (6)
  - Rash [Unknown]
  - Pruritus [Unknown]
  - Headache [Unknown]
  - Fatigue [Unknown]
  - Nausea [Unknown]
  - Dry skin [Unknown]
